FAERS Safety Report 10241042 (Version 2)
Quarter: 2014Q3

REPORT INFORMATION
  Report Type: Spontaneous
  Country: BE (occurrence: BE)
  Receive Date: 20140617
  Receipt Date: 20140702
  Transmission Date: 20150326
  Serious: Yes (Disabling)
  Sender: FDA-Public Use
  Company Number: BE-MALLINCKRODT-T201402473

PATIENT
  Age: 62 Year
  Sex: Female

DRUGS (1)
  1. OPTIRAY [Suspect]
     Active Substance: IOVERSOL
     Indication: UROGRAM
     Dosage: 100 ML, SINGLE
     Route: 042
     Dates: start: 20130118, end: 20130118

REACTIONS (4)
  - Hypertension [Unknown]
  - Nausea [Unknown]
  - Headache [Unknown]
  - Syncope [Unknown]

NARRATIVE: CASE EVENT DATE: 20130118
